FAERS Safety Report 7215506-X (Version None)
Quarter: 2011Q1

REPORT INFORMATION
  Report Type: 
  Country: None (occurrence: None)
  Receive Date: 20110107
  Receipt Date: 20101230
  Transmission Date: 20110831
  Serious: Yes (Hospitalization)
  Sender: FDA-Public Use
  Company Number: B0615475A

PATIENT
  Sex: Female
  Weight: 57.1 kg

DRUGS (1)
  1. PAZOPANIB [Suspect]
     Indication: SARCOMA
     Dosage: 800MG PER DAY
     Route: 048
     Dates: start: 20091015, end: 20091204

REACTIONS (5)
  - OEDEMA PERIPHERAL [None]
  - PAIN [None]
  - EMOTIONAL DISTRESS [None]
  - VENA CAVA THROMBOSIS [None]
  - WEIGHT BEARING DIFFICULTY [None]
